FAERS Safety Report 4398642-5 (Version None)
Quarter: 2004Q3

REPORT INFORMATION
  Report Type: 
  Country: None (occurrence: None)
  Receive Date: 20040715
  Receipt Date: 20040709
  Transmission Date: 20050211
  Serious: Yes (Other)
  Sender: FDA-Public Use
  Company Number: PHBS2004JP09324

PATIENT

DRUGS (3)
  1. DIOVAN [Suspect]
     Route: 048
  2. AMLODIN [Suspect]
     Route: 048
  3. SOLU-MEDROL [Concomitant]
     Route: 042

REACTIONS (3)
  - AGRANULOCYTOSIS [None]
  - RED BLOOD CELL COUNT DECREASED [None]
  - WHITE BLOOD CELL COUNT DECREASED [None]
